FAERS Safety Report 6010851-8 (Version None)
Quarter: 2008Q4

REPORT INFORMATION
  Report Type: 
  Country: None (occurrence: None)
  Receive Date: 20081218
  Receipt Date: 20081215
  Transmission Date: 20090506
  Serious: Yes (Other)
  Sender: FDA-Public Use
  Company Number: US-BAYER-200812631BCC

PATIENT
  Age: 78 Year
  Sex: Male
  Weight: 59 kg

DRUGS (8)
  1. ASPIRIN [Suspect]
     Indication: ISCHAEMIC HEART DISEASE PROPHYLAXIS
     Dosage: TOTAL DAILY DOSE: 81 MG  UNIT DOSE: 81 MG
     Route: 048
     Dates: start: 19980101
  2. FERGON [Suspect]
     Indication: ANAEMIA
     Dosage: TOTAL DAILY DOSE: 1 DF  UNIT DOSE: 1 DF
     Route: 048
     Dates: start: 20080201
  3. PLAVIX [Suspect]
     Route: 048
  4. ASCORBIC ACID [Concomitant]
  5. VITAMIN B12 PLUS FOLIC ACID [Concomitant]
  6. CQ10 [Concomitant]
  7. METHYLSULFONYLMETHANE [Concomitant]
  8. COZAAR [Concomitant]

REACTIONS (6)
  - CARDIAC FAILURE CONGESTIVE [None]
  - CONSTIPATION [None]
  - DYSPEPSIA [None]
  - HERPES ZOSTER [None]
  - PNEUMONIA [None]
  - VASCULAR RUPTURE [None]
